FAERS Safety Report 6746607-8 (Version None)
Quarter: 2010Q2

REPORT INFORMATION
  Report Type: 
  Country: None (occurrence: None)
  Receive Date: 20100528
  Receipt Date: 20091106
  Transmission Date: 20101027
  Serious: No
  Sender: FDA-Public Use
  Company Number: US-ASTRAZENECA-2009SE31578

PATIENT

DRUGS (2)
  1. PRILOSEC OTC [Suspect]
     Dosage: 2 TABLET, 2 /DAY
     Route: 048
     Dates: start: 20090915
  2. NEXIUM [Concomitant]

REACTIONS (4)
  - INAPPROPRIATE SCHEDULE OF DRUG ADMINISTRATION [None]
  - INCORRECT DOSE ADMINISTERED [None]
  - INCORRECT DRUG ADMINISTRATION DURATION [None]
  - POLLAKIURIA [None]
